FAERS Safety Report 5646498-2 (Version None)
Quarter: 2008Q1

REPORT INFORMATION
  Report Type: 
  Country: None (occurrence: None)
  Receive Date: 20080303
  Receipt Date: 20080221
  Transmission Date: 20080703
  Serious: Yes (Hospitalization, Other)
  Sender: FDA-Public Use
  Company Number: CS-NOVOPROD-272566

PATIENT
  Age: 11 Year
  Sex: Female
  Weight: 31 kg

DRUGS (1)
  1. NORDITROPIN [Suspect]
     Dosage: .95 MG, QD
     Route: 058
     Dates: start: 20041119, end: 20080212

REACTIONS (1)
  - INFLAMMATORY MYOFIBROBLASTIC TUMOUR [None]
